FAERS Safety Report 24374868 (Version 1)
Quarter: 2024Q3

REPORT INFORMATION
  Report Type: Spontaneous
  Country: US (occurrence: US)
  Receive Date: 20240927
  Receipt Date: 20240927
  Transmission Date: 20241016
  Serious: Yes (Other)
  Sender: SANOFI AVENTIS
  Company Number: US-SA-2024SA278926

PATIENT
  Sex: Male

DRUGS (12)
  1. AUBAGIO [Suspect]
     Active Substance: TERIFLUNOMIDE
     Indication: Multiple sclerosis
     Dosage: UNK
     Dates: start: 2012
  2. ALBUTEROL [Concomitant]
     Active Substance: ALBUTEROL
  3. APPLE CIDER [Concomitant]
  4. BACLOFEN [Concomitant]
     Active Substance: BACLOFEN
  5. DALFAMPRIDINE [Concomitant]
     Active Substance: DALFAMPRIDINE
  6. ADVAIR HFA [Concomitant]
     Active Substance: FLUTICASONE PROPIONATE\SALMETEROL XINAFOATE
  7. NEURONTIN [Concomitant]
     Active Substance: GABAPENTIN
  8. OCREVUS [Concomitant]
     Active Substance: OCRELIZUMAB
  9. CRESTOR [Concomitant]
     Active Substance: ROSUVASTATIN CALCIUM
  10. VIAGRA [Concomitant]
     Active Substance: SILDENAFIL CITRATE
  11. TESTOSTERONE [Concomitant]
     Active Substance: TESTOSTERONE
  12. GABAPENTIN [Concomitant]
     Active Substance: GABAPENTIN

REACTIONS (1)
  - Multiple sclerosis [Unknown]

NARRATIVE: CASE EVENT DATE: 20120101
